FAERS Safety Report 9465958 (Version 3)
Quarter: 2014Q3

REPORT INFORMATION
  Report Type: Spontaneous
  Country: US (occurrence: US)
  Receive Date: 20130820
  Receipt Date: 20140702
  Transmission Date: 20150326
  Serious: Yes (Death, Hospitalization, Other)
  Sender: FDA-Public Use
  Company Number: US-SANOFI-AVENTIS-2013SA082081

PATIENT
  Age: 74 Year
  Sex: Male
  Weight: 81.64 kg

DRUGS (21)
  1. AVELOX [Concomitant]
     Active Substance: MOXIFLOXACIN HYDROCHLORIDE
  2. COUMADIN [Concomitant]
     Active Substance: WARFARIN SODIUM
     Route: 048
  3. ZOCOR [Concomitant]
     Active Substance: SIMVASTATIN
  4. LASIX [Concomitant]
     Active Substance: FUROSEMIDE
  5. COLACE [Concomitant]
     Active Substance: DOCUSATE SODIUM
  6. ZAROXOLYN [Concomitant]
     Active Substance: METOLAZONE
     Dosage: 2.5 1 TABLET 30 MINS PRIOR TO LASIX
     Route: 048
  7. POTASSIUM CHLORIDE. [Concomitant]
     Active Substance: POTASSIUM CHLORIDE
  8. FERROUS SULFATE [Concomitant]
     Active Substance: FERROUS SULFATE\FERROUS SULFATE, DRIED
     Route: 048
  9. COLESTYRAMINE [Concomitant]
     Active Substance: CHOLESTYRAMINE
  10. METOPROLOL TARTRATE. [Concomitant]
     Active Substance: METOPROLOL TARTRATE
  11. FESO 4 [Concomitant]
  12. KAY CIEL [Concomitant]
     Active Substance: POTASSIUM CHLORIDE
  13. MIRALAX [Concomitant]
     Active Substance: POLYETHYLENE GLYCOL 3350
  14. MAGNESIUM OXIDE. [Concomitant]
     Active Substance: MAGNESIUM OXIDE
  15. MULTAQ [Suspect]
     Active Substance: DRONEDARONE
     Indication: PRODUCT USED FOR UNKNOWN INDICATION
     Route: 048
     Dates: start: 20110130
  16. ASPIRIN. [Concomitant]
     Active Substance: ASPIRIN
     Route: 048
  17. IRON SULFATE [Concomitant]
     Active Substance: FERROUS SULFATE ANHYDROUS
  18. VITAMIN D3 [Concomitant]
     Active Substance: CHOLECALCIFEROL
  19. PROBIOTIC ADVANTAGE [Concomitant]
  20. OMEPRAZOLE. [Concomitant]
     Active Substance: OMEPRAZOLE
  21. PROTONIX [Concomitant]
     Active Substance: PANTOPRAZOLE SODIUM

REACTIONS (28)
  - Pleural effusion [Unknown]
  - Urine output decreased [Unknown]
  - Platelet count decreased [Unknown]
  - Ischaemic cardiomyopathy [Fatal]
  - Renal failure [Unknown]
  - Decreased appetite [Unknown]
  - Urinary tract infection [Unknown]
  - Hyperkalaemia [Unknown]
  - Mental impairment [Unknown]
  - Haemoglobin decreased [Unknown]
  - Asthenia [Unknown]
  - Diarrhoea [Unknown]
  - Acute respiratory failure [Unknown]
  - Myocardial infarction [Unknown]
  - Chest pain [Fatal]
  - Abdominal pain [Unknown]
  - Haematocrit decreased [Unknown]
  - Pneumonia [Unknown]
  - Somnolence [Unknown]
  - Feeling abnormal [Unknown]
  - Cardiac failure congestive [Fatal]
  - Blood phosphorus decreased [Unknown]
  - Dyspnoea [Fatal]
  - Blood creatinine abnormal [Unknown]
  - Blood albumin decreased [Unknown]
  - Troponin increased [Unknown]
  - Lung consolidation [Unknown]
  - Confusional state [Unknown]

NARRATIVE: CASE EVENT DATE: 2011
